FAERS Safety Report 4659316-6 (Version None)
Quarter: 2005Q2

REPORT INFORMATION
  Report Type: 
  Country: None (occurrence: None)
  Receive Date: 20050510
  Receipt Date: 20050426
  Transmission Date: 20051028
  Serious: Yes (Hospitalization, Disabling)
  Sender: FDA-Public Use
  Company Number: 05P-062-0289806-00

PATIENT
  Age: 52 Year
  Sex: Male
  Weight: 50 kg

DRUGS (3)
  1. HUMIRA [Suspect]
     Indication: RHEUMATOID ARTHRITIS
     Dosage: 40 MG, 1 IN 2 WK, SUBCUTANEOUS
     Route: 058
     Dates: start: 20031006, end: 20050111
  2. METHOTREXATE SODIUM [Concomitant]
  3. CORTICOIDS [Concomitant]

REACTIONS (16)
  - APRAXIA [None]
  - AUTONOMIC NERVOUS SYSTEM IMBALANCE [None]
  - BRONCHOPNEUMONIA [None]
  - DEMENTIA [None]
  - DEMYELINATION [None]
  - DEPRESSED LEVEL OF CONSCIOUSNESS [None]
  - DISEASE PROGRESSION [None]
  - DISORIENTATION [None]
  - INCONTINENCE [None]
  - MICROANGIOPATHY [None]
  - PATHOGEN RESISTANCE [None]
  - PLEURAL EFFUSION [None]
  - PNEUMONIA [None]
  - SPEECH DISORDER [None]
  - TUBERCULOSIS [None]
  - WEIGHT DECREASED [None]
